FAERS Safety Report 21693715 (Version 1)
Quarter: 2022Q4

REPORT INFORMATION
  Report Type: Spontaneous
  Country: CA (occurrence: None)
  Receive Date: 20221207
  Receipt Date: 20221207
  Transmission Date: 20230112
  Serious: No
  Sender: FDA-Public Use
  Company Number: CA-ROCHE-3234391

PATIENT

DRUGS (1)
  1. OCREVUS [Suspect]
     Active Substance: OCRELIZUMAB
     Indication: Multiple sclerosis
     Route: 065

REACTIONS (1)
  - Herpes zoster [Unknown]
